FAERS Safety Report 13837625 (Version 7)
Quarter: 2018Q1

REPORT INFORMATION
  Report Type: Report from Study
  Country: JP (occurrence: JP)
  Receive Date: 20170805
  Receipt Date: 20180315
  Transmission Date: 20180508
  Serious: Yes (Life-Threatening, Hospitalization, Other)
  Sender: FDA-Public Use
  Company Number: JP-ROCHE-1967156

PATIENT
  Age: 61 Year
  Sex: Male
  Weight: 73 kg

DRUGS (9)
  1. BAYASPIRIN [Concomitant]
     Active Substance: ASPIRIN
     Dosage: THE FRACTIONATION DOSE FREQUENCY IS UNCERTAIN.
     Route: 048
     Dates: end: 20170716
  2. BAYASPIRIN [Concomitant]
     Active Substance: ASPIRIN
     Dosage: THE FRACTIONATION DOSE FREQUENCY IS UNCERTAIN.
     Route: 048
     Dates: start: 20170720
  3. BEVACIZUMAB. [Suspect]
     Active Substance: BEVACIZUMAB
     Indication: LUNG ADENOCARCINOMA
     Dosage: DOSE INTERVAL UNCERTAINTY
     Route: 041
     Dates: start: 20160405, end: 20170627
  4. ERLOTINIB [Suspect]
     Active Substance: ERLOTINIB
     Indication: LUNG ADENOCARCINOMA
     Route: 048
     Dates: start: 20170222, end: 20170714
  5. ISOCORONAL R [Concomitant]
     Active Substance: ISOSORBIDE DINITRATE
     Dosage: THE FRACTIONATION DOSE FREQUENCY IS UNCERTAIN.
     Route: 048
     Dates: end: 20170716
  6. MICAFUNGIN [Concomitant]
     Active Substance: MICAFUNGIN
  7. VANCOMYCIN [Concomitant]
     Active Substance: VANCOMYCIN
  8. CRESTOR [Concomitant]
     Active Substance: ROSUVASTATIN CALCIUM
     Indication: HYPERLIPIDAEMIA
     Dosage: THE FRACTIONATION DOSE FREQUENCY IS UNCERTAIN.
     Route: 048
     Dates: end: 20170716
  9. ERLOTINIB [Suspect]
     Active Substance: ERLOTINIB
     Indication: LUNG ADENOCARCINOMA
     Route: 048
     Dates: start: 20160405, end: 2017

REACTIONS (9)
  - Blood pressure decreased [Recovering/Resolving]
  - Thyroiditis [Unknown]
  - Rash [Recovering/Resolving]
  - Hypernatraemia [Recovering/Resolving]
  - Septic shock [Unknown]
  - Diabetes insipidus [Recovering/Resolving]
  - Peritonitis [Recovered/Resolved]
  - Large intestine perforation [Recovered/Resolved]
  - Incarcerated inguinal hernia [Recovering/Resolving]

NARRATIVE: CASE EVENT DATE: 20160426
